FAERS Safety Report 24764773 (Version 4)
Quarter: 2025Q1

REPORT INFORMATION
  Report Type: Spontaneous
  Country: CA (occurrence: CA)
  Receive Date: 20241223
  Receipt Date: 20250326
  Transmission Date: 20250409
  Serious: Yes (Death, Hospitalization, Disabling)
  Sender: ROCHE
  Company Number: CA-ROCHE-10000159847

PATIENT
  Age: 40 Year
  Sex: Female
  Weight: 96 kg

DRUGS (29)
  1. ACTEMRA [Suspect]
     Active Substance: TOCILIZUMAB
     Indication: Rheumatoid arthritis
     Route: 058
  2. ACTEMRA [Suspect]
     Active Substance: TOCILIZUMAB
     Route: 058
  3. ACTEMRA [Suspect]
     Active Substance: TOCILIZUMAB
     Route: 058
  4. ACTEMRA [Suspect]
     Active Substance: TOCILIZUMAB
     Route: 058
  5. ACTEMRA [Suspect]
     Active Substance: TOCILIZUMAB
     Route: 058
  6. ACTEMRA [Suspect]
     Active Substance: TOCILIZUMAB
     Route: 058
  7. ACTEMRA [Suspect]
     Active Substance: TOCILIZUMAB
     Indication: Rheumatoid arthritis
     Route: 042
  8. ACTEMRA [Suspect]
     Active Substance: TOCILIZUMAB
     Route: 042
  9. ACTEMRA [Suspect]
     Active Substance: TOCILIZUMAB
     Route: 042
  10. ACTEMRA [Suspect]
     Active Substance: TOCILIZUMAB
     Route: 042
  11. ACTEMRA [Suspect]
     Active Substance: TOCILIZUMAB
     Route: 042
  12. ACTEMRA [Suspect]
     Active Substance: TOCILIZUMAB
     Route: 042
  13. ACTEMRA [Suspect]
     Active Substance: TOCILIZUMAB
     Indication: Rheumatoid arthritis
     Route: 065
  14. ACTEMRA [Suspect]
     Active Substance: TOCILIZUMAB
     Route: 065
  15. RITUXIMAB [Suspect]
     Active Substance: RITUXIMAB
     Indication: Rheumatoid arthritis
     Route: 065
  16. RITUXIMAB [Suspect]
     Active Substance: RITUXIMAB
     Route: 043
  17. RITUXIMAB [Suspect]
     Active Substance: RITUXIMAB
     Route: 065
  18. RITUXIMAB [Suspect]
     Active Substance: RITUXIMAB
     Indication: Rheumatoid arthritis
     Route: 058
  19. RITUXIMAB [Suspect]
     Active Substance: RITUXIMAB
     Indication: Rheumatoid arthritis
     Route: 042
  20. RITUXIMAB [Suspect]
     Active Substance: RITUXIMAB
     Route: 042
  21. TOCILIZUMAB [Suspect]
     Active Substance: TOCILIZUMAB
     Indication: Rheumatoid arthritis
     Route: 065
  22. TOCILIZUMAB [Suspect]
     Active Substance: TOCILIZUMAB
     Route: 048
  23. TOCILIZUMAB [Suspect]
     Active Substance: TOCILIZUMAB
     Route: 065
  24. TOCILIZUMAB [Suspect]
     Active Substance: TOCILIZUMAB
     Route: 065
  25. TOCILIZUMAB [Suspect]
     Active Substance: TOCILIZUMAB
     Route: 048
  26. TOCILIZUMAB [Suspect]
     Active Substance: TOCILIZUMAB
     Indication: Rheumatoid arthritis
     Route: 042
  27. TOCILIZUMAB [Suspect]
     Active Substance: TOCILIZUMAB
     Route: 042
  28. TOCILIZUMAB [Suspect]
     Active Substance: TOCILIZUMAB
     Indication: Rheumatoid arthritis
     Route: 058
  29. TOCILIZUMAB [Suspect]
     Active Substance: TOCILIZUMAB
     Route: 058

REACTIONS (35)
  - C-reactive protein abnormal [Fatal]
  - C-reactive protein increased [Fatal]
  - Confusional state [Fatal]
  - Contraindicated product administered [Fatal]
  - Drug hypersensitivity [Fatal]
  - Drug ineffective [Fatal]
  - Dyspnoea [Fatal]
  - Ill-defined disorder [Fatal]
  - Infusion related reaction [Fatal]
  - Nausea [Fatal]
  - Injection site reaction [Fatal]
  - Off label use [Fatal]
  - Onychomadesis [Fatal]
  - Onychomycosis [Fatal]
  - Pain [Fatal]
  - Pemphigus [Fatal]
  - Pericarditis [Fatal]
  - Product use in unapproved indication [Fatal]
  - Product use issue [Fatal]
  - Psoriatic arthropathy [Fatal]
  - Rash [Fatal]
  - Rheumatic fever [Fatal]
  - Rheumatoid arthritis [Fatal]
  - Sleep disorder [Fatal]
  - Swelling [Fatal]
  - Synovitis [Fatal]
  - Systemic lupus erythematosus [Fatal]
  - Therapeutic product effect decreased [Fatal]
  - Therapeutic product effect incomplete [Fatal]
  - Treatment failure [Fatal]
  - Type 2 diabetes mellitus [Fatal]
  - Wound [Fatal]
  - Underdose [Fatal]
  - Intentional product use issue [Fatal]
  - Overdose [Fatal]
